FAERS Safety Report 10060788 (Version 1)
Quarter: 2014Q2

REPORT INFORMATION
  Report Type: Spontaneous
  Country: US (occurrence: US)
  Receive Date: 20140404
  Receipt Date: 20140404
  Transmission Date: 20141212
  Serious: No
  Sender: FDA-Public Use
  Company Number: US-BAXTER-2014BAX016650

PATIENT
  Age: 73 Year
  Sex: Male

DRUGS (1)
  1. 0.9% SODIUM CHLORIDE INJECTION [Suspect]
     Indication: HAEMODIALYSIS
     Route: 050
     Dates: start: 2013

REACTIONS (2)
  - Bradycardia [Not Recovered/Not Resolved]
  - Condition aggravated [Not Recovered/Not Resolved]
